FAERS Safety Report 4806029-3 (Version None)
Quarter: 2005Q4

REPORT INFORMATION
  Report Type: 
  Country: None (occurrence: None)
  Receive Date: 20051019
  Receipt Date: 20050929
  Transmission Date: 20060501
  Serious: Yes (Other)
  Sender: FDA-Public Use
  Company Number: USA0509109577

PATIENT
  Sex: Female

DRUGS (1)
  1. HUMULIN U [Suspect]
     Indication: DIABETES MELLITUS

REACTIONS (4)
  - ABNORMAL BEHAVIOUR [None]
  - BLOOD GLUCOSE DECREASED [None]
  - EYE HAEMORRHAGE [None]
  - HYPOGLYCAEMIA UNAWARENESS [None]
